FAERS Safety Report 10512561 (Version 2)
Quarter: 2014Q4

REPORT INFORMATION
  Report Type: Spontaneous
  Country: TN (occurrence: TN)
  Receive Date: 20141011
  Receipt Date: 20141011
  Transmission Date: 20150528
  Serious: Yes (Hospitalization, Other)
  Sender: FDA-Public Use
  Company Number: PHHY2014TN007285

PATIENT
  Age: 11 Year
  Sex: Male
  Weight: 27 kg

DRUGS (1)
  1. TEGRETOL [Suspect]
     Active Substance: CARBAMAZEPINE
     Indication: PARTIAL SEIZURES
     Dosage: 300 MG, BID (TWICE A DAY)
     Route: 048
     Dates: start: 20131018, end: 20131201

REACTIONS (5)
  - Rash [Recovered/Resolved with Sequelae]
  - Drug reaction with eosinophilia and systemic symptoms [Recovered/Resolved]
  - Hepatocellular injury [Recovered/Resolved with Sequelae]
  - Epilepsy [Not Recovered/Not Resolved]
  - Lung disorder [Recovered/Resolved with Sequelae]

NARRATIVE: CASE EVENT DATE: 20131201
